FAERS Safety Report 4355967-7 (Version None)
Quarter: 2004Q2

REPORT INFORMATION
  Report Type: 
  Country: None (occurrence: None)
  Receive Date: 20040507
  Receipt Date: 20040507
  Transmission Date: 20050107
  Serious: Yes (Death)
  Sender: FDA-Public Use
  Company Number: None

PATIENT
  Age: 54 Year
  Sex: Male
  Weight: 56.4 kg

DRUGS (8)
  1. AVELOX [Suspect]
     Indication: BRONCHOPNEUMONIA
     Dosage: 400 MG , Q DAY , PO
     Route: 048
     Dates: start: 20040430, end: 20040502
  2. SYNTHROID [Concomitant]
  3. PREDNISONE [Concomitant]
  4. DILANTIN [Concomitant]
  5. SARLIX [Concomitant]
  6. RENAGEL [Concomitant]
  7. PROTONIX [Concomitant]
  8. ATENOLOL [Concomitant]

REACTIONS (2)
  - BRADYCARDIA [None]
  - CARDIAC ARREST [None]
